FAERS Safety Report 11016654 (Version 2)
Quarter: 2015Q2

REPORT INFORMATION
  Report Type: Spontaneous
  Country: US (occurrence: US)
  Receive Date: 20150412
  Receipt Date: 20150525
  Transmission Date: 20150821
  Serious: No
  Sender: FDA-Public Use
  Company Number: US-JNJFOC-20140216289

PATIENT
  Sex: Female

DRUGS (3)
  1. NORETHINDRONE AND ETHINYL ESTRADIOL [Suspect]
     Active Substance: ETHINYL ESTRADIOL\NORETHINDRONE
     Indication: PRODUCT USED FOR UNKNOWN INDICATION
     Route: 048
  2. IVACAFTOR [Interacting]
     Active Substance: IVACAFTOR
     Indication: PRODUCT USED FOR UNKNOWN INDICATION
     Route: 065
  3. PLACEBO [Interacting]
     Active Substance: UNSPECIFIED INGREDIENT
     Indication: PRODUCT USED FOR UNKNOWN INDICATION
     Route: 065

REACTIONS (3)
  - Treatment noncompliance [Unknown]
  - Drug interaction [Unknown]
  - Rash [Unknown]
